FAERS Safety Report 5947650-9 (Version None)
Quarter: 2008Q4

REPORT INFORMATION
  Report Type: 
  Country: None (occurrence: None)
  Receive Date: 20081107
  Receipt Date: 20081024
  Transmission Date: 20090506
  Serious: Yes (Hospitalization, Disabling, Other)
  Sender: FDA-Public Use
  Company Number: DSU-2007-00800

PATIENT
  Age: 71 Year
  Sex: Female
  Weight: 60 kg

DRUGS (3)
  1. OLMESARTAN MEDOXOMIL [Suspect]
     Indication: HYPERTENSION
     Dosage: 20 MG (20 MG, QD), PER ORAL
     Route: 048
  2. MELOXICAM [Concomitant]
  3. HIGROTON (CHLORTALIDONE) (CHLORTALIDONE) [Concomitant]

REACTIONS (7)
  - CONFUSIONAL STATE [None]
  - FALL [None]
  - HEAD INJURY [None]
  - LIPOMA [None]
  - OSTEOARTHRITIS [None]
  - PAIN IN EXTREMITY [None]
  - WALKING AID USER [None]
